FAERS Safety Report 6175703-1 (Version None)
Quarter: 2009Q2

REPORT INFORMATION
  Report Type: 
  Country: None (occurrence: None)
  Receive Date: 20090427
  Receipt Date: 20080408
  Transmission Date: 20091009
  Serious: Yes (Other)
  Sender: FDA-Public Use
  Company Number: TEST00208000643

PATIENT
  Age: 59 Year
  Sex: Male
  Weight: 114 kg

DRUGS (10)
  1. ANDROGEL [Suspect]
     Indication: BLOOD TESTOSTERONE DECREASED
     Dosage: SEE IMAGE
     Dates: start: 20070330, end: 20070416
  2. ANDROGEL [Suspect]
     Indication: HYPOGONADISM
     Dosage: SEE IMAGE
     Dates: start: 20070330, end: 20070416
  3. ANDROGEL [Suspect]
     Indication: BLOOD TESTOSTERONE DECREASED
     Dosage: SEE IMAGE
     Dates: start: 20070417, end: 20070514
  4. ANDROGEL [Suspect]
     Indication: HYPOGONADISM
     Dosage: SEE IMAGE
     Dates: start: 20070417, end: 20070514
  5. ANDROGEL [Suspect]
     Indication: BLOOD TESTOSTERONE DECREASED
     Dosage: SEE IMAGE
     Dates: start: 20070515, end: 20080206
  6. ANDROGEL [Suspect]
     Indication: HYPOGONADISM
     Dosage: SEE IMAGE
     Dates: start: 20070515, end: 20080206
  7. ZOCOR [Concomitant]
  8. COZAAR [Concomitant]
  9. LOTREL [Concomitant]
  10. AMLODIPINE [Concomitant]

REACTIONS (2)
  - NEOPLASM PROSTATE [None]
  - PROSTATE CANCER STAGE II [None]
